FAERS Safety Report 8050500-0 (Version None)
Quarter: 2012Q1

REPORT INFORMATION
  Report Type: 
  Country: None (occurrence: None)
  Receive Date: 20120117
  Receipt Date: 20120112
  Transmission Date: 20120608
  Serious: Yes (Other)
  Sender: FDA-Public Use
  Company Number: US-PFIZER INC-2012009966

PATIENT
  Sex: Male
  Weight: 96 kg

DRUGS (3)
  1. CARDURA [Suspect]
     Indication: PROSTATIC DISORDER
  2. BISOPROLOL FUMARATE [Concomitant]
     Indication: HYPERTENSION
     Dosage: UNK
  3. CARDURA [Suspect]
     Indication: HYPERTENSION
     Dosage: 4 MG, 1X/DAY
     Route: 048
     Dates: start: 20070101, end: 20120112

REACTIONS (2)
  - SPERM CONCENTRATION ZERO [None]
  - WRONG TECHNIQUE IN DRUG USAGE PROCESS [None]
